FAERS Safety Report 12129630 (Version 1)
Quarter: 2016Q1

REPORT INFORMATION
  Report Type: Spontaneous
  Country: US (occurrence: None)
  Receive Date: 20160229
  Receipt Date: 20160229
  Transmission Date: 20160526
  Serious: Yes (Death)
  Sender: FDA-Public Use
  Company Number: None

PATIENT
  Sex: Female
  Weight: 66 kg

DRUGS (11)
  1. DACLATASVIR 60MG [Suspect]
     Active Substance: DACLATASVIR
     Indication: HEPATITIS C
     Route: 048
     Dates: start: 20151114, end: 20160101
  2. SERTRALINE [Concomitant]
     Active Substance: SERTRALINE HYDROCHLORIDE
  3. LAMTRIGINE [Concomitant]
  4. PLAN B [Concomitant]
     Active Substance: LEVONORGESTREL
  5. PRENATAL VITAMINS [Concomitant]
     Active Substance: VITAMINS
  6. ABILIFY [Concomitant]
     Active Substance: ARIPIPRAZOLE
  7. SOFOSBUVIR 400MG [Suspect]
     Active Substance: SOFOSBUVIR
     Indication: HEPATITIS C
     Route: 048
     Dates: start: 20151114, end: 20160101
  8. ZOLOFT [Concomitant]
     Active Substance: SERTRALINE HYDROCHLORIDE
  9. FOLIC ACID. [Concomitant]
     Active Substance: FOLIC ACID
  10. MULTIVITAMINS [Concomitant]
     Active Substance: VITAMINS
  11. HYDROXYZINE [Concomitant]
     Active Substance: HYDROXYZINE\HYDROXYZINE HYDROCHLORIDE

REACTIONS (2)
  - Overdose [None]
  - Drug abuse [None]

NARRATIVE: CASE EVENT DATE: 20160101
